FAERS Safety Report 6991848-8 (Version None)
Quarter: 2010Q3

REPORT INFORMATION
  Report Type: 
  Country: None (occurrence: None)
  Receive Date: 20100916
  Receipt Date: 20100916
  Transmission Date: 20110219
  Serious: No
  Sender: FDA-Public Use
  Company Number: None

PATIENT
  Sex: Male
  Weight: 68.856 kg

DRUGS (3)
  1. RISPERIDONE [Suspect]
     Indication: AGGRESSION
     Dosage: 1MG TABS. BID P.O.
     Route: 048
     Dates: start: 20090101
  2. RISPERIDONE [Suspect]
     Indication: ANXIETY
     Dosage: 1MG TABS. BID P.O.
     Route: 048
     Dates: start: 20090101
  3. RISPERIDONE [Suspect]
     Indication: IMPULSIVE BEHAVIOUR
     Dosage: 1MG TABS. BID P.O.
     Route: 048
     Dates: start: 20090101

REACTIONS (2)
  - MENTAL IMPAIRMENT [None]
  - PRODUCT SUBSTITUTION ISSUE [None]
